FAERS Safety Report 25235661 (Version 3)
Quarter: 2025Q2

REPORT INFORMATION
  Report Type: Spontaneous
  Country: US (occurrence: US)
  Receive Date: 20250424
  Receipt Date: 20250428
  Transmission Date: 20250716
  Serious: Yes (Death, Other)
  Sender: IPSEN BIOPHARMACEUTICALS, INC.
  Company Number: US-IPSEN Group, Research and Development-2025-09268

PATIENT
  Age: 9 Year
  Sex: Male
  Weight: 20 kg

DRUGS (4)
  1. SOMATULINE DEPOT [Suspect]
     Active Substance: LANREOTIDE ACETATE
     Indication: Neuroendocrine carcinoma metastatic
     Route: 058
     Dates: start: 20250206, end: 20250411
  2. SOMATULINE DEPOT [Suspect]
     Active Substance: LANREOTIDE ACETATE
     Indication: Off label use
  3. BUDESONIDE [Concomitant]
     Active Substance: BUDESONIDE
  4. SIROLIMUS [Concomitant]
     Active Substance: SIROLIMUS

REACTIONS (3)
  - Neuroendocrine carcinoma metastatic [Fatal]
  - Off label use [Unknown]
  - Off label use [Unknown]

NARRATIVE: CASE EVENT DATE: 20250206
